FAERS Safety Report 19847555 (Version 1)
Quarter: 2021Q3

REPORT INFORMATION
  Report Type: Report from Study
  Country: CA (occurrence: CA)
  Receive Date: 20210917
  Receipt Date: 20210917
  Transmission Date: 20211014
  Serious: No
  Sender: FDA-Public Use
  Company Number: CA-UCBSA-2021044132

PATIENT

DRUGS (2)
  1. ROTIGOTINE RLS [Suspect]
     Active Substance: ROTIGOTINE
     Indication: RESTLESS LEGS SYNDROME
     Dosage: 4.5 MG, 2MG/24H
     Route: 062
  2. ROTIGOTINE RLS [Suspect]
     Active Substance: ROTIGOTINE
     Dosage: 2.25 MG 1MG/24H
     Route: 062

REACTIONS (1)
  - Product adhesion issue [Unknown]
